FAERS Safety Report 16575645 (Version 7)
Quarter: 2021Q3

REPORT INFORMATION
  Report Type: Report from Study
  Country: AT (occurrence: AT)
  Receive Date: 20190716
  Receipt Date: 20210802
  Transmission Date: 20211014
  Serious: Yes (Hospitalization, Other)
  Sender: FDA-Public Use
  Company Number: AT-CELLTRION INC.-2019AT022540

PATIENT

DRUGS (61)
  1. LEUPRORELIN [Suspect]
     Active Substance: LEUPROLIDE ACETATE
     Indication: HER2 POSITIVE BREAST CANCER
     Dosage: 11.25 MILLIGRAM, Q3MONTHS
     Route: 058
     Dates: start: 201804
  2. TRASTUZUMAB EMTANSINE [Suspect]
     Active Substance: ADO-TRASTUZUMAB EMTANSINE
     Dosage: UNK
     Route: 042
     Dates: start: 20170522
  3. PERTUZUMAB. [Suspect]
     Active Substance: PERTUZUMAB
     Indication: HER2 POSITIVE BREAST CANCER
     Dosage: 420 MG, EVERY 3 WEEKS;MOST RECENT DOSE ON 27/DEC/2019
     Route: 042
     Dates: start: 201811
  4. PERTUZUMAB. [Suspect]
     Active Substance: PERTUZUMAB
     Dosage: 840 MILLIGRAM, Q3WEEKS
     Route: 042
     Dates: start: 20181122
  5. DENOSUMAB [Suspect]
     Active Substance: DENOSUMAB
     Dosage: UNK
     Route: 058
     Dates: start: 20190319
  6. TRASTUZUMAB (UNKNOWN) [Suspect]
     Active Substance: TRASTUZUMAB
     Indication: HER2 POSITIVE BREAST CANCER
     Dosage: 600 MG, EVERY 3 WEEKS (MOST RECENT DOSE ON 27/DEC/2019)
     Route: 041
     Dates: start: 20180503
  7. LEUPRORELIN [Suspect]
     Active Substance: LEUPROLIDE ACETATE
     Dosage: 11.25 MILLIGRAM, Q3MONTHS
     Route: 058
     Dates: start: 201804
  8. LETROZOLE. [Suspect]
     Active Substance: LETROZOLE
     Dosage: 2.5 MILLIGRAM, QD
     Route: 048
     Dates: start: 20180426
  9. TRASTUZUMAB EMTANSINE [Suspect]
     Active Substance: ADO-TRASTUZUMAB EMTANSINE
     Dosage: 3.6 MG/KG, Q4WEEKS; MOST RECENT DOSE PRIOR TO THE EVENT: 21/AUG/2017; MOST RECENT DOSE PRIOR TO THE
     Route: 042
     Dates: start: 20161114
  10. TRASTUZUMAB EMTANSINE [Suspect]
     Active Substance: ADO-TRASTUZUMAB EMTANSINE
     Dosage: 3.5 MILLIGRAM/KILOGRAM, Q4WEEKS
     Route: 042
     Dates: start: 20161114
  11. TRASTUZUMAB EMTANSINE [Suspect]
     Active Substance: ADO-TRASTUZUMAB EMTANSINE
     Dosage: UNK
     Route: 042
     Dates: start: 20170821
  12. TRASTUZUMAB EMTANSINE [Suspect]
     Active Substance: ADO-TRASTUZUMAB EMTANSINE
     Dosage: UNK
     Route: 042
     Dates: start: 20170821
  13. DENOSUMAB [Suspect]
     Active Substance: DENOSUMAB
     Dosage: 120 MILLIGRAM, MONTHLY (MOST RECENT DOSE OF DENOSUMAB 19/MAR/2019, 29/NOV/2018)
     Route: 058
     Dates: start: 201611, end: 201904
  14. FORTECORTIN [Concomitant]
     Active Substance: DEXAMETHASONE
     Indication: PRODUCT USED FOR UNKNOWN INDICATION
     Dosage: UNK
     Dates: start: 20170330, end: 20200417
  15. TRASTUZUMAB EMTANSINE [Suspect]
     Active Substance: ADO-TRASTUZUMAB EMTANSINE
     Dosage: 3.6 MG/KG, Q4WEEKS; MOST RECENT DOSE PRIOR TO THE EVENT: 21/AUG/2017; MOST RECENT DOSE PRIOR TO THE
     Route: 042
     Dates: start: 20161114
  16. PERTUZUMAB. [Suspect]
     Active Substance: PERTUZUMAB
     Dosage: 840 MILLIGRAM, Q3WEEKS (MOST RECENT DOSE PRIOR TO THE EVENT: 22/NOV/2018)
     Route: 042
     Dates: start: 20181122
  17. DENOSUMAB [Suspect]
     Active Substance: DENOSUMAB
     Dosage: UNK
     Route: 058
     Dates: start: 20181129
  18. DENOSUMAB [Suspect]
     Active Substance: DENOSUMAB
     Dosage: UNK
     Route: 058
     Dates: start: 20181129
  19. DENOSUMAB [Suspect]
     Active Substance: DENOSUMAB
     Dosage: UNK
     Route: 058
     Dates: start: 20190319
  20. PARKEMED [Concomitant]
     Active Substance: MEFENAMIC ACID
     Indication: DENTAL FISTULA
     Dosage: UNK
     Dates: start: 20170315, end: 20200417
  21. TRASTUZUMAB EMTANSINE [Suspect]
     Active Substance: ADO-TRASTUZUMAB EMTANSINE
     Dosage: 3.6 MG/KG, Q4WEEKS; MOST RECENT DOSE PRIOR TO THE EVENT: 21/AUG/2017; MOST RECENT DOSE PRIOR TO THE
     Route: 042
     Dates: start: 20161114
  22. TRASTUZUMAB EMTANSINE [Suspect]
     Active Substance: ADO-TRASTUZUMAB EMTANSINE
     Dosage: 3.5 MILLIGRAM/KILOGRAM, Q4WEEKS
     Route: 042
     Dates: start: 20161114
  23. TRASTUZUMAB EMTANSINE [Suspect]
     Active Substance: ADO-TRASTUZUMAB EMTANSINE
     Dosage: 3.5 MILLIGRAM/KILOGRAM, Q4WEEKS
     Route: 042
     Dates: start: 20161114
  24. TRASTUZUMAB EMTANSINE [Suspect]
     Active Substance: ADO-TRASTUZUMAB EMTANSINE
     Dosage: 600 MILLIGRAM, Q3WEEKS
     Route: 041
     Dates: start: 20180305
  25. DENOSUMAB [Suspect]
     Active Substance: DENOSUMAB
     Dosage: 120 MILLIGRAM, MONTHLY (MOST RECENT DOSE OF DENOSUMAB 19/MAR/2019, 29/NOV/2018)
     Route: 058
     Dates: start: 201611, end: 201904
  26. DENOSUMAB [Suspect]
     Active Substance: DENOSUMAB
     Dosage: UNK
     Route: 058
     Dates: start: 20190319
  27. EMEND [Concomitant]
     Active Substance: APREPITANT
     Indication: PRODUCT USED FOR UNKNOWN INDICATION
     Dosage: ONGOING = CHECKED
     Dates: start: 20161115, end: 20200417
  28. LEUPRORELIN [Suspect]
     Active Substance: LEUPROLIDE ACETATE
     Dosage: 11.25 MILLIGRAM, Q3MONTHS
     Route: 058
     Dates: start: 201804
  29. TRASTUZUMAB EMTANSINE [Suspect]
     Active Substance: ADO-TRASTUZUMAB EMTANSINE
     Dosage: 3.5 MILLIGRAM/KILOGRAM, Q4WEEKS
     Route: 042
     Dates: start: 20161114
  30. TRASTUZUMAB EMTANSINE [Suspect]
     Active Substance: ADO-TRASTUZUMAB EMTANSINE
     Dosage: UNK
     Route: 042
     Dates: start: 20170522
  31. TRASTUZUMAB EMTANSINE [Suspect]
     Active Substance: ADO-TRASTUZUMAB EMTANSINE
     Dosage: UNK
     Route: 042
     Dates: start: 20170821
  32. TRASTUZUMAB EMTANSINE [Suspect]
     Active Substance: ADO-TRASTUZUMAB EMTANSINE
     Dosage: UNK
     Route: 042
     Dates: start: 20170821
  33. TRASTUZUMAB EMTANSINE [Suspect]
     Active Substance: ADO-TRASTUZUMAB EMTANSINE
     Dosage: 600 MILLIGRAM, Q3WEEKS
     Route: 041
     Dates: start: 20180305
  34. TRASTUZUMAB EMTANSINE [Suspect]
     Active Substance: ADO-TRASTUZUMAB EMTANSINE
     Dosage: 600 MILLIGRAM, Q3WEEKS
     Route: 041
     Dates: start: 20180305
  35. TRASTUZUMAB EMTANSINE [Suspect]
     Active Substance: ADO-TRASTUZUMAB EMTANSINE
     Dosage: 600 MILLIGRAM, Q3WEEKS
     Route: 041
     Dates: start: 20180305
  36. PERTUZUMAB. [Suspect]
     Active Substance: PERTUZUMAB
     Dosage: 840 MILLIGRAM, Q3WEEKS
     Route: 042
     Dates: start: 20181122
  37. DENOSUMAB [Suspect]
     Active Substance: DENOSUMAB
     Dosage: 120 MILLIGRAM, MONTHLY (MOST RECENT DOSE OF DENOSUMAB 19/MAR/2019, 29/NOV/2018)
     Route: 058
     Dates: start: 201611, end: 201904
  38. DENOSUMAB [Suspect]
     Active Substance: DENOSUMAB
     Dosage: UNK
     Route: 058
     Dates: start: 20181129
  39. ZOFRAN [Concomitant]
     Active Substance: ONDANSETRON HYDROCHLORIDE
     Indication: PRODUCT USED FOR UNKNOWN INDICATION
     Dosage: UNK
     Dates: start: 20161115, end: 20200417
  40. LETROZOLE. [Suspect]
     Active Substance: LETROZOLE
     Dosage: 2.5 MILLIGRAM, QD
     Route: 048
     Dates: start: 20180426
  41. DENOSUMAB [Suspect]
     Active Substance: DENOSUMAB
     Dosage: 120 MILLIGRAM, MONTHLY (MOST RECENT DOSE OF DENOSUMAB 19/MAR/2019, 29/NOV/2018)
     Route: 058
     Dates: start: 201611, end: 201904
  42. ZOFRAN [Concomitant]
     Active Substance: ONDANSETRON HYDROCHLORIDE
     Dosage: UNK
     Dates: start: 20161115, end: 20200417
  43. MEXALEN [Concomitant]
     Active Substance: ACETAMINOPHEN
     Indication: METASTASES TO CENTRAL NERVOUS SYSTEM
     Dosage: UNK
     Dates: start: 20170609, end: 20200417
  44. LETROZOLE. [Suspect]
     Active Substance: LETROZOLE
     Indication: HER2 POSITIVE BREAST CANCER
     Dosage: O.D. ? ONCE DAILY
     Route: 048
     Dates: start: 20180426
  45. TRASTUZUMAB EMTANSINE [Suspect]
     Active Substance: ADO-TRASTUZUMAB EMTANSINE
     Dosage: 3.6 MG/KG, Q4WEEKS; MOST RECENT DOSE PRIOR TO THE EVENT: 21/AUG/2017; MOST RECENT DOSE PRIOR TO THE
     Route: 042
     Dates: start: 20161114
  46. TRASTUZUMAB EMTANSINE [Suspect]
     Active Substance: ADO-TRASTUZUMAB EMTANSINE
     Dosage: 3.5 MILLIGRAM/KILOGRAM, Q4WEEKS
     Route: 042
     Dates: start: 20161114
  47. TRASTUZUMAB EMTANSINE [Suspect]
     Active Substance: ADO-TRASTUZUMAB EMTANSINE
     Dosage: UNK
     Route: 042
     Dates: start: 20170522
  48. TRASTUZUMAB EMTANSINE [Suspect]
     Active Substance: ADO-TRASTUZUMAB EMTANSINE
     Dosage: UNK
     Route: 042
     Dates: start: 20170522
  49. TRASTUZUMAB EMTANSINE [Suspect]
     Active Substance: ADO-TRASTUZUMAB EMTANSINE
     Dosage: UNK
     Route: 042
     Dates: start: 20170821
  50. DENOSUMAB [Suspect]
     Active Substance: DENOSUMAB
     Indication: HER2 POSITIVE BREAST CANCER
     Dosage: 120 MG, MONTHLY (MOST RECENT DOSE OF DENOSUMAB 19/MAR/2019, 29/NOV/2018)
     Route: 058
     Dates: start: 201611, end: 201904
  51. DENOSUMAB [Suspect]
     Active Substance: DENOSUMAB
     Dosage: 120 MILLIGRAM, MONTHLY (MOST RECENT DOSE OF DENOSUMAB 19/MAR/2019, 29/NOV/2018)
     Route: 058
     Dates: start: 201611, end: 201904
  52. DENOSUMAB [Suspect]
     Active Substance: DENOSUMAB
     Dosage: UNK
     Route: 058
     Dates: start: 20190319
  53. DENOSUMAB [Suspect]
     Active Substance: DENOSUMAB
     Dosage: UNK
     Route: 058
     Dates: start: 20190319
  54. MIRANAX [Concomitant]
     Indication: PRODUCT USED FOR UNKNOWN INDICATION
     Dosage: UNK
     Dates: start: 20161115, end: 20200417
  55. LETROZOLE. [Suspect]
     Active Substance: LETROZOLE
     Dosage: 2.5 MILLIGRAM, QD
     Route: 048
     Dates: start: 20180426
  56. TRASTUZUMAB EMTANSINE [Suspect]
     Active Substance: ADO-TRASTUZUMAB EMTANSINE
     Indication: HER2 POSITIVE BREAST CANCER
     Dosage: 3.6 MG/KG, Q4WEEKS; MOST RECENT DOSE PRIOR TO THE EVENT: 21/AUG/2017; MOST RECENT DOSE PRIOR TO THE
     Route: 042
     Dates: start: 20161114
  57. TRASTUZUMAB EMTANSINE [Suspect]
     Active Substance: ADO-TRASTUZUMAB EMTANSINE
     Dosage: UNK
     Route: 042
     Dates: start: 20170522
  58. TRASTUZUMAB EMTANSINE [Suspect]
     Active Substance: ADO-TRASTUZUMAB EMTANSINE
     Dosage: 600 MILLIGRAM, Q3WEEKS
     Route: 041
     Dates: start: 20180305
  59. DENOSUMAB [Suspect]
     Active Substance: DENOSUMAB
     Dosage: UNK
     Route: 058
     Dates: start: 20181129
  60. DENOSUMAB [Suspect]
     Active Substance: DENOSUMAB
     Dosage: UNK
     Route: 058
     Dates: start: 20181129
  61. PARKEMED [Concomitant]
     Active Substance: MEFENAMIC ACID
     Dosage: UNK
     Dates: start: 20181113, end: 20181120

REACTIONS (7)
  - Vision blurred [Recovered/Resolved]
  - Chills [Recovered/Resolved]
  - Dental fistula [Not Recovered/Not Resolved]
  - Overdose [Unknown]
  - Night sweats [Recovered/Resolved]
  - Spinal pain [Recovered/Resolved]
  - Dental fistula [Recovered/Resolved]

NARRATIVE: CASE EVENT DATE: 20181112
